FAERS Safety Report 6223548-6 (Version None)
Quarter: 2009Q2

REPORT INFORMATION
  Report Type: 
  Country: None (occurrence: None)
  Receive Date: 20090610
  Receipt Date: 20090527
  Transmission Date: 20091009
  Serious: No
  Sender: FDA-Public Use
  Company Number: 235570K09USA

PATIENT
  Age: 77 Year
  Sex: Male

DRUGS (3)
  1. REBIF [Suspect]
     Indication: MULTIPLE SCLEROSIS
     Dosage: 44 MCG, 3 IN 1 WEEKS, SUBCUTANEOUS
     Route: 058
     Dates: start: 20030101
  2. PRILOSEC [Concomitant]
  3. TYLENOL (COTYLENOL) [Concomitant]

REACTIONS (4)
  - CONDITION AGGRAVATED [None]
  - HYPOAESTHESIA [None]
  - MULTIPLE SCLEROSIS [None]
  - SEBORRHOEA [None]
